FAERS Safety Report 15082634 (Version 9)
Quarter: 2022Q3

REPORT INFORMATION
  Report Type: Spontaneous
  Country: FR (occurrence: FR)
  Receive Date: 20180628
  Receipt Date: 20220708
  Transmission Date: 20221027
  Serious: Yes (Hospitalization, Other)
  Sender: FDA-Public Use
  Company Number: None

PATIENT
  Age: 35 Year
  Sex: Female

DRUGS (10)
  1. TENOFOVIR DISOPROXIL [Interacting]
     Active Substance: TENOFOVIR DISOPROXIL
     Indication: HIV infection
     Dosage: 300 MILLIGRAM, QD
     Route: 065
  2. RITONAVIR [Interacting]
     Active Substance: RITONAVIR
     Indication: HIV infection
     Dosage: 100 MILLIGRAM, QD
     Route: 065
  3. ATAZANAVIR SULFATE [Interacting]
     Active Substance: ATAZANAVIR SULFATE
     Indication: HIV infection
     Dosage: 300 MILLIGRAM, QD
     Route: 065
  4. EMTRICITABINE\TENOFOVIR DISOPROXIL [Interacting]
     Active Substance: EMTRICITABINE\TENOFOVIR DISOPROXIL
     Indication: HIV infection
     Dosage: 1 DOSAGE FORM, QD,(300/200 MG ONCE DAILY)
     Route: 065
  5. EMTRICITABINE [Interacting]
     Active Substance: EMTRICITABINE
     Indication: HIV infection
     Dosage: 200 MILLIGRAM, QD
     Route: 065
  6. TIVICAY [Interacting]
     Active Substance: DOLUTEGRAVIR SODIUM
     Indication: HIV infection
     Dosage: 50 MILLIGRAM, QD
     Route: 048
  7. ATAZANAVIR\RITONAVIR [Interacting]
     Active Substance: ATAZANAVIR\RITONAVIR
     Indication: HIV infection
     Dosage: 100 MG, QD (300/100 MG ONCE DAILY)
     Route: 065
  8. ATAZANAVIR\RITONAVIR [Interacting]
     Active Substance: ATAZANAVIR\RITONAVIR
     Dosage: 400 MILLIGRAM, QD
     Route: 065
  9. PENTOXIFYLLINE [Concomitant]
     Active Substance: PENTOXIFYLLINE
     Dosage: UNK
     Route: 065
  10. Previscan [Concomitant]
     Dosage: UNK
     Route: 065

REACTIONS (12)
  - Drug resistance [Unknown]
  - Virologic failure [Recovered/Resolved]
  - Premature rupture of membranes [Recovered/Resolved]
  - Premature delivery [Recovered/Resolved]
  - Drug level increased [Unknown]
  - Viral load increased [Recovered/Resolved]
  - Drug ineffective [Unknown]
  - Off label use [Unknown]
  - Drug interaction [Unknown]
  - Maternal exposure during pregnancy [Recovered/Resolved]
  - Drug abuse [Unknown]
  - Intentional product misuse [Unknown]
